FAERS Safety Report 7338814-0 (Version None)
Quarter: 2011Q1

REPORT INFORMATION
  Report Type: 
  Country: None (occurrence: None)
  Receive Date: 20110308
  Receipt Date: 20110224
  Transmission Date: 20110831
  Serious: Yes (Life-Threatening, Hospitalization, Disabling, Other)
  Sender: FDA-Public Use
  Company Number: US-MERCK-1102USA03300

PATIENT
  Sex: Female

DRUGS (4)
  1. VYTORIN [Suspect]
     Indication: BLOOD CHOLESTEROL
     Route: 048
     Dates: start: 20100101, end: 20110208
  2. ELAVIL [Concomitant]
     Route: 065
  3. LEVOTHROID [Concomitant]
     Route: 065
  4. NOVOLOG [Concomitant]
     Route: 065

REACTIONS (1)
  - COLITIS ISCHAEMIC [None]
